FAERS Safety Report 4710164-8 (Version None)
Quarter: 2005Q3

REPORT INFORMATION
  Report Type: 
  Country: None (occurrence: None)
  Receive Date: 20050708
  Receipt Date: 20050708
  Transmission Date: 20060218
  Serious: Yes (Hospitalization)
  Sender: FDA-Public Use
  Company Number: None

PATIENT
  Age: 49 Year
  Sex: Female
  Weight: 148.7798 kg

DRUGS (1)
  1. VANCOCIN HCL [Suspect]
     Dosage: 1 GM IV Q 2 HRS; 1 GM IV Q 8 HRS AFTER TROUGH
     Route: 042
     Dates: start: 20050621, end: 20050628

REACTIONS (2)
  - BODY TEMPERATURE INCREASED [None]
  - RASH [None]
